FAERS Safety Report 4336702-5 (Version None)
Quarter: 2004Q2

REPORT INFORMATION
  Report Type: 
  Country: None (occurrence: None)
  Receive Date: 20040412
  Receipt Date: 20040401
  Transmission Date: 20050107
  Serious: Yes (Hospitalization)
  Sender: FDA-Public Use
  Company Number: US-BRISTOL-MYERS SQUIBB COMPANY-12548350

PATIENT
  Age: 75 Year
  Sex: Male
  Weight: 93 kg

DRUGS (4)
  1. COUMADIN [Suspect]
     Indication: ATRIAL FIBRILLATION
     Dosage: START 5MG QD; STOPPED ON 01-MAR-2004; RESTARTED TO VARYING DOSE 2.5MG TO 5MG DAILY ON ?? DATE.
     Route: 048
     Dates: start: 20040227
  2. LISINOPRIL [Concomitant]
  3. DIGOXIN [Concomitant]
  4. LEVOXYL [Concomitant]

REACTIONS (2)
  - ANAESTHETIC COMPLICATION [None]
  - INTERNATIONAL NORMALISED RATIO DECREASED [None]
